FAERS Safety Report 9463234 (Version 3)
Quarter: 2013Q3

REPORT INFORMATION
  Report Type: Spontaneous
  Country: RU (occurrence: RU)
  Receive Date: 20130818
  Receipt Date: 20130913
  Transmission Date: 20140515
  Serious: Yes (Death)
  Sender: FDA-Public Use
  Company Number: RU-ROCHE-1262854

PATIENT
  Age: 10 Year
  Sex: Male

DRUGS (2)
  1. ACTEMRA [Suspect]
     Indication: JUVENILE IDIOPATHIC ARTHRITIS
     Route: 065
  2. METHOTREXATE [Concomitant]

REACTIONS (1)
  - Cardiac failure acute [Fatal]
